FAERS Safety Report 10761758 (Version 1)
Quarter: 2015Q1

REPORT INFORMATION
  Report Type: Spontaneous
  Country: US (occurrence: None)
  Receive Date: 20150128
  Receipt Date: 20150128
  Transmission Date: 20150721
  Serious: Yes (Other)
  Sender: FDA-Public Use
  Company Number: 1466326

PATIENT
  Age: 53 Year
  Sex: Male
  Weight: 114.31 kg

DRUGS (1)
  1. RITUXAN [Suspect]
     Active Substance: RITUXIMAB
     Indication: RHEUMATOID ARTHRITIS
     Dosage: 1000 MG, INTRAVENOUS (NOT OTHERWISE SPECIFIED)?
     Route: 042
     Dates: start: 20140923, end: 20140923

REACTIONS (7)
  - Flushing [None]
  - Vision blurred [None]
  - Hypertension [None]
  - Headache [None]
  - Throat irritation [None]
  - Chest discomfort [None]
  - Tachycardia [None]
